FAERS Safety Report 18650957 (Version 1)
Quarter: 2020Q4

REPORT INFORMATION
  Report Type: Spontaneous
  Country: US (occurrence: US)
  Receive Date: 20201222
  Receipt Date: 20201222
  Transmission Date: 20210114
  Serious: No
  Sender: FDA-Public Use
  Company Number: US-BAYER-2020-283534

PATIENT

DRUGS (3)
  1. CLARITIN [Suspect]
     Active Substance: LORATADINE
     Indication: SKIN MASS
  2. CLARITIN [Suspect]
     Active Substance: LORATADINE
     Indication: SKIN MASS
  3. CLARITIN [Suspect]
     Active Substance: LORATADINE
     Indication: RASH VESICULAR

REACTIONS (2)
  - Rash [Unknown]
  - Product use in unapproved indication [Unknown]
